FAERS Safety Report 13307368 (Version 1)
Quarter: 2017Q1

REPORT INFORMATION
  Report Type: Spontaneous
  Country: US (occurrence: US)
  Receive Date: 20170308
  Receipt Date: 20170308
  Transmission Date: 20170428
  Serious: No
  Sender: FDA-Public Use
  Company Number: US-PERRIGO-16US016342

PATIENT
  Age: 72 Year
  Sex: Male
  Weight: 82.54 kg

DRUGS (7)
  1. TAMULOSIN [Concomitant]
     Active Substance: TAMSULOSIN
     Indication: URINE OUTPUT
     Dosage: .4 MG, UNK
     Route: 048
     Dates: end: 201604
  2. HYDROCODONE BITARTRATE AND ACETAMINOPHEN [Suspect]
     Active Substance: ACETAMINOPHEN\HYDROCODONE BITARTRATE
     Indication: BACK PAIN
     Dosage: 1/2 TO 1 TABLET, EVERY SIX HOURS, PRN
     Route: 048
     Dates: start: 2012
  3. NAPROXEN SODIUM. [Suspect]
     Active Substance: NAPROXEN SODIUM
     Indication: BACK PAIN
     Dosage: 220 MG, BID
     Route: 048
     Dates: start: 201603, end: 20160516
  4. ACETAMINOPHEN. [Suspect]
     Active Substance: ACETAMINOPHEN
     Indication: BACK PAIN
     Dosage: 500 MG, BID, PRN
     Route: 048
     Dates: start: 2015, end: 20160516
  5. CARVEDILOL. [Concomitant]
     Active Substance: CARVEDILOL
     Indication: PRODUCT USED FOR UNKNOWN INDICATION
     Dosage: 3.12 MG, QOD, EVERY M, T, W
     Route: 048
  6. DICLOFENAC                         /00372302/ [Concomitant]
     Active Substance: DICLOFENAC
     Indication: PAIN
     Dosage: 75 0.2 MG, UNK
     Route: 048
     Dates: end: 201604
  7. WARFARIN [Concomitant]
     Active Substance: WARFARIN
     Indication: ANTICOAGULANT THERAPY
     Dosage: 2.5 MG, ON TUES, THURS, SAT, SUN AND 5 MG ON MON, WED, FRI
     Dates: start: 2012

REACTIONS (5)
  - Urticaria [Recovered/Resolved]
  - Pruritus [Recovered/Resolved]
  - Blister [Recovered/Resolved]
  - Hypersensitivity [Recovered/Resolved]
  - Incorrect drug administration duration [Recovered/Resolved]

NARRATIVE: CASE EVENT DATE: 201603
